FAERS Safety Report 7225244-5 (Version None)
Quarter: 2011Q1

REPORT INFORMATION
  Report Type: 
  Country: None (occurrence: None)
  Receive Date: 20110113
  Receipt Date: 20110103
  Transmission Date: 20110831
  Serious: Yes (Other)
  Sender: FDA-Public Use
  Company Number: A0905484A

PATIENT
  Age: 39 Year
  Sex: Female
  Weight: 86.4 kg

DRUGS (8)
  1. TORADOL [Suspect]
     Route: 065
     Dates: start: 20100512, end: 20100512
  2. LUNESTA [Concomitant]
     Dosage: 2MG AS REQUIRED
     Route: 048
     Dates: start: 20100801
  3. VALTREX [Suspect]
     Route: 065
     Dates: start: 20100501, end: 20100501
  4. TYLENOL-500 [Concomitant]
  5. VALIUM [Suspect]
     Indication: PREMEDICATION
     Route: 065
     Dates: start: 20100521, end: 20100521
  6. LUNESTA [Suspect]
     Indication: INSOMNIA
     Dosage: 2MG AS REQUIRED
     Route: 048
     Dates: end: 20100501
  7. PERCOGESIC [Concomitant]
  8. FLU VACCINE [Concomitant]
     Indication: PROPHYLAXIS
     Route: 065
     Dates: start: 20100101, end: 20100101

REACTIONS (20)
  - FEELING ABNORMAL [None]
  - NECK INJURY [None]
  - ASTHENIA [None]
  - CEREBRAL MICROANGIOPATHY [None]
  - HYPOAESTHESIA [None]
  - MUSCLE TIGHTNESS [None]
  - MUSCLE SPASMS [None]
  - VERTIGO [None]
  - DYSARTHRIA [None]
  - SENSORY DISTURBANCE [None]
  - HYPOAESTHESIA FACIAL [None]
  - DYSKINESIA [None]
  - TRAUMATIC BRAIN INJURY [None]
  - MENTAL IMPAIRMENT [None]
  - SPONDYLITIS [None]
  - POST CONCUSSION SYNDROME [None]
  - STARING [None]
  - MUSCLE TWITCHING [None]
  - DIZZINESS [None]
  - FATIGUE [None]
